FAERS Safety Report 15979236 (Version 1)
Quarter: 2019Q1

REPORT INFORMATION
  Report Type: Spontaneous
  Country: US (occurrence: US)
  Receive Date: 20190124
  Receipt Date: 20190124
  Transmission Date: 20190418
  Serious: No
  Sender: FDA-Public Use
  Company Number: None

PATIENT
  Age: 42 Year

DRUGS (1)
  1. XELJANZ XR [Suspect]
     Active Substance: TOFACITINIB CITRATE
     Indication: PSORIATIC ARTHROPATHY
     Route: 048
     Dates: start: 201811

REACTIONS (5)
  - Drug effect decreased [None]
  - Furuncle [None]
  - Oral herpes [None]
  - Alopecia [None]
  - Abdominal pain upper [None]

NARRATIVE: CASE EVENT DATE: 201811
